FAERS Safety Report 14174928 (Version 1)
Quarter: 2017Q4

REPORT INFORMATION
  Report Type: Spontaneous
  Country: DE (occurrence: DE)
  Receive Date: 20171109
  Receipt Date: 20171109
  Transmission Date: 20180321
  Serious: Yes (Other)
  Sender: FDA-Public Use
  Company Number: DE-B.I. PHARMACEUTICALS,INC./RIDGEFIELD-2017-BI-060509

PATIENT
  Age: 43 Year
  Sex: Female

DRUGS (3)
  1. GILOTRIF [Suspect]
     Active Substance: AFATINIB
     Route: 065
     Dates: start: 201508
  2. GILOTRIF [Suspect]
     Active Substance: AFATINIB
     Indication: NON-SMALL CELL LUNG CANCER
     Route: 065
     Dates: start: 201507
  3. OSIMERTINIB. [Concomitant]
     Active Substance: OSIMERTINIB
     Indication: NON-SMALL CELL LUNG CANCER
     Route: 065
     Dates: start: 201606

REACTIONS (3)
  - Malignant neoplasm progression [Unknown]
  - Malignant neoplasm progression [Unknown]
  - Skin toxicity [Unknown]

NARRATIVE: CASE EVENT DATE: 201604
